FAERS Safety Report 5329812-7 (Version None)
Quarter: 2007Q2

REPORT INFORMATION
  Report Type: 
  Country: None (occurrence: None)
  Receive Date: 20070517
  Receipt Date: 20070517
  Transmission Date: 20071010
  Serious: Yes (Other)
  Sender: FDA-Public Use
  Company Number: None

PATIENT
  Age: 9 Year
  Sex: Female
  Weight: 31.7518 kg

DRUGS (1)
  1. SINGULAIR [Suspect]
     Indication: RHINITIS ALLERGIC
     Dosage: 1 TABLET DAILY PO
     Route: 048
     Dates: start: 20070507, end: 20070515

REACTIONS (4)
  - CRYING [None]
  - HEADACHE [None]
  - NAUSEA [None]
  - VOMITING [None]
